FAERS Safety Report 4362225-3 (Version None)
Quarter: 2004Q2

REPORT INFORMATION
  Report Type: 
  Country: None (occurrence: None)
  Receive Date: 20040517
  Receipt Date: 20040510
  Transmission Date: 20050107
  Serious: Yes (Hospitalization)
  Sender: FDA-Public Use
  Company Number: 2003184367US

PATIENT
  Age: 67 Year
  Sex: Female

DRUGS (9)
  1. NICODERM [Suspect]
     Indication: SMOKING CESSATION THERAPY
     Dosage: 21 MG, QD, TRANSDERMAL
     Route: 062
     Dates: start: 20031008
  2. MIACALCIN [Concomitant]
  3. ULTRAM [Concomitant]
  4. DILTIAZEM [Concomitant]
  5. CELEXA [Concomitant]
  6. VIOXX [Concomitant]
  7. ACETANOL [Concomitant]
  8. ROFECOXIB [Concomitant]
  9. RISEDRONIC ACID (RISEDRONIC ACID) [Concomitant]

REACTIONS (8)
  - ABDOMINAL PAIN [None]
  - CARDIOMEGALY [None]
  - CAROTID ARTERY ATHEROMA [None]
  - CEREBRAL ATROPHY [None]
  - CONFUSIONAL STATE [None]
  - GLOBAL AMNESIA [None]
  - HIATUS HERNIA [None]
  - STRESS SYMPTOMS [None]
